FAERS Safety Report 6737744-2 (Version None)
Quarter: 2010Q2

REPORT INFORMATION
  Report Type: 
  Country: None (occurrence: None)
  Receive Date: 20100524
  Receipt Date: 20100513
  Transmission Date: 20101027
  Serious: Yes (Hospitalization)
  Sender: FDA-Public Use
  Company Number: CA-JNJFOC-20100508254

PATIENT
  Sex: Male
  Weight: 87 kg

DRUGS (3)
  1. REMICADE [Suspect]
     Indication: COLITIS ULCERATIVE
     Route: 042
  2. SOTALOL HCL [Concomitant]
  3. SOTALOL HCL [Concomitant]

REACTIONS (1)
  - ARRHYTHMIA [None]
